FAERS Safety Report 14295208 (Version 1)
Quarter: 2017Q4

REPORT INFORMATION
  Report Type: Spontaneous
  Country: GB (occurrence: GB)
  Receive Date: 20171218
  Receipt Date: 20171218
  Transmission Date: 20180321
  Serious: Yes (Other)
  Sender: FDA-Public Use
  Company Number: GB-JNJFOC-20171205113

PATIENT
  Age: 54 Year
  Sex: Female
  Weight: 58.06 kg

DRUGS (3)
  1. PARACETAMOL [Suspect]
     Active Substance: ACETAMINOPHEN
     Route: 048
  2. PARACETAMOL [Suspect]
     Active Substance: ACETAMINOPHEN
     Indication: HANGOVER
     Route: 048
     Dates: start: 20171119, end: 20171119
  3. ALKA-SELTZER [Concomitant]
     Active Substance: ANHYDROUS CITRIC ACID\ASPIRIN\SODIUM BICARBONATE
     Indication: PRODUCT USED FOR UNKNOWN INDICATION
     Route: 065

REACTIONS (3)
  - Rash [Unknown]
  - Reaction to excipient [Unknown]
  - Swelling [Unknown]

NARRATIVE: CASE EVENT DATE: 20171119
